FAERS Safety Report 7600114-9 (Version None)
Quarter: 2011Q3

REPORT INFORMATION
  Report Type: 
  Country: None (occurrence: None)
  Receive Date: 20110711
  Receipt Date: 20110627
  Transmission Date: 20111222
  Serious: Yes (Other)
  Sender: FDA-Public Use
  Company Number: CA-JNJFOC-20110700746

PATIENT
  Sex: Female
  Weight: 54.7 kg

DRUGS (3)
  1. REMICADE [Suspect]
     Indication: CROHN'S DISEASE
     Route: 042
     Dates: start: 20090501
  2. IMURAN [Concomitant]
  3. LOPERAMIDE [Concomitant]

REACTIONS (2)
  - HAEMATEMESIS [None]
  - ABDOMINAL PAIN [None]
